FAERS Safety Report 22209747 (Version 1)
Quarter: 2023Q2

REPORT INFORMATION
  Report Type: Report from Study
  Country: US (occurrence: US)
  Receive Date: 20230414
  Receipt Date: 20230414
  Transmission Date: 20230721
  Serious: No
  Sender: FDA-Public Use
  Company Number: US-ABBVIE-4294240

PATIENT
  Sex: Male
  Weight: 98.883 kg

DRUGS (3)
  1. SKYRIZI [Suspect]
     Active Substance: RISANKIZUMAB-RZAA
     Indication: Psoriasis
     Dosage: FORM STRENGTH: 150 MILLIGRAM
     Route: 058
  2. SKYRIZI [Suspect]
     Active Substance: RISANKIZUMAB-RZAA
     Dosage: FORM STRENGTH: 150 MILLIGRAM?ONE IN ONCE FREQUENCY WEEK 0
     Route: 058
     Dates: start: 20221104, end: 20221104
  3. SKYRIZI [Suspect]
     Active Substance: RISANKIZUMAB-RZAA
     Dosage: FORM STRENGTH: 150 MILLIGRAM?ONE IN ONCE FREQUENCY?WEEK FOUR
     Route: 058
     Dates: start: 2022, end: 2022

REACTIONS (2)
  - Drug ineffective [Not Recovered/Not Resolved]
  - Upper respiratory tract infection [Unknown]
